FAERS Safety Report 24192434 (Version 2)
Quarter: 2025Q1

REPORT INFORMATION
  Report Type: Spontaneous
  Country: US (occurrence: US)
  Receive Date: 20240809
  Receipt Date: 20250325
  Transmission Date: 20250408
  Serious: Yes (Other)
  Sender: CSL BEHRING
  Company Number: US-BEH-2024176950

PATIENT
  Age: 33 Year
  Sex: Male

DRUGS (12)
  1. IDELVION [Suspect]
     Active Substance: COAGULATION FACTOR IX RECOMBINANT HUMAN
     Indication: Factor IX deficiency
     Dosage: INFUSE 3400-4080 UNITS SLOW INTRAVENOUS (IV) PUSH ONCE EVERY SEVEN DAYS FOR PROPHYLAXIS AND FOR MINO
     Route: 042
     Dates: start: 202310
  2. IDELVION [Suspect]
     Active Substance: COAGULATION FACTOR IX RECOMBINANT HUMAN
     Indication: Factor IX deficiency
     Dosage: INFUSE 3400-4080 UNITS SLOW INTRAVENOUS (IV) PUSH ONCE EVERY SEVEN DAYS FOR PROPHYLAXIS AND FOR MINO
     Route: 042
     Dates: start: 202310
  3. IDELVION [Suspect]
     Active Substance: COAGULATION FACTOR IX RECOMBINANT HUMAN
     Dosage: INFUSE 3400-4080 UNITS SLOW INTRAVENOUS (IV) PUSH ONCE EVERY SEVEN DAYS FOR PROPHYLAXIS AND FOR MINO
     Route: 042
     Dates: start: 202310
  4. IDELVION [Suspect]
     Active Substance: COAGULATION FACTOR IX RECOMBINANT HUMAN
     Dosage: INFUSE 3400-4080 UNITS SLOW INTRAVENOUS (IV) PUSH ONCE EVERY SEVEN DAYS FOR PROPHYLAXIS AND FOR MINO
     Route: 042
     Dates: start: 202310
  5. IDELVION [Suspect]
     Active Substance: COAGULATION FACTOR IX RECOMBINANT HUMAN
     Dosage: INFUSE 3550-4260 UNITS SLOW IV PUSH EVERY 7 DAYS FOR PROPHYLAXIS AND AS NEEDED FOR MINOR BLEEDS. INF
     Route: 042
     Dates: start: 202310
  6. IDELVION [Suspect]
     Active Substance: COAGULATION FACTOR IX RECOMBINANT HUMAN
     Dosage: INFUSE 3550-4260 UNITS SLOW IV PUSH EVERY 7 DAYS FOR PROPHYLAXIS AND AS NEEDED FOR MINOR BLEEDS. INF
     Route: 042
     Dates: start: 202310
  7. IDELVION [Suspect]
     Active Substance: COAGULATION FACTOR IX RECOMBINANT HUMAN
     Dosage: INFUSE 3550-4260 UNITS SLOW IV PUSH EVERY 7 DAYS FOR PROPHYLAXIS AND AS NEEDED FOR MINOR BLEEDS. INF
     Route: 042
     Dates: start: 202310
  8. IDELVION [Suspect]
     Active Substance: COAGULATION FACTOR IX RECOMBINANT HUMAN
     Dosage: INFUSE 3550-4260 UNITS SLOW IV PUSH EVERY 7 DAYS FOR PROPHYLAXIS AND AS NEEDED FOR MINOR BLEEDS. INF
     Route: 042
     Dates: start: 202310
  9. IDELVION [Suspect]
     Active Substance: COAGULATION FACTOR IX RECOMBINANT HUMAN
     Route: 042
     Dates: start: 202310
  10. IDELVION [Suspect]
     Active Substance: COAGULATION FACTOR IX RECOMBINANT HUMAN
     Route: 042
     Dates: start: 202310
  11. IDELVION [Suspect]
     Active Substance: COAGULATION FACTOR IX RECOMBINANT HUMAN
     Indication: Factor IX deficiency
     Dosage: UNK UNK, QW
     Route: 042
     Dates: start: 202310
  12. IDELVION [Suspect]
     Active Substance: COAGULATION FACTOR IX RECOMBINANT HUMAN
     Indication: Factor IX deficiency
     Dosage: UNK UNK, QW
     Route: 042
     Dates: start: 202310

REACTIONS (1)
  - Haemarthrosis [Unknown]

NARRATIVE: CASE EVENT DATE: 20240801
